FAERS Safety Report 4566411-9 (Version None)
Quarter: 2005Q1

REPORT INFORMATION
  Report Type: 
  Country: None (occurrence: None)
  Receive Date: 20050128
  Receipt Date: 20050111
  Transmission Date: 20050727
  Serious: Yes (Hospitalization)
  Sender: FDA-Public Use
  Company Number: 2004BI001851

PATIENT
  Age: 67 Year
  Sex: Female

DRUGS (21)
  1. AVONEX [Suspect]
     Indication: MULTIPLE SCLEROSIS
     Dosage: 30 UG;QW;IM
     Route: 030
     Dates: start: 19970801, end: 20030913
  2. AVONEX [Suspect]
     Indication: MULTIPLE SCLEROSIS
     Dosage: 30 UG;QW;IM
     Route: 030
     Dates: start: 20030913
  3. CELEBREX [Concomitant]
  4. SYNTHROID [Concomitant]
  5. BACLOFEN [Concomitant]
  6. COZAAR [Concomitant]
  7. PREMARIN [Concomitant]
  8. MULTI-VITAMIN [Concomitant]
  9. GLUCOSAMINE [Concomitant]
  10. BEXTRA [Concomitant]
  11. FLONASE [Concomitant]
  12. ALLEGRA [Concomitant]
  13. NEXIUM [Concomitant]
  14. CALCIUM GLUCONATE [Concomitant]
  15. K+ [Concomitant]
  16. HYDROCHLOROTHIAZIDE [Concomitant]
  17. MIRAPEX [Concomitant]
  18. ASPIRIN [Concomitant]
  19. VIT E [Concomitant]
  20. FOSAMAX [Concomitant]
  21. IV SOLU-MEDROL [Concomitant]

REACTIONS (8)
  - ENDOMETRIAL HYPERTROPHY [None]
  - ENDOMETRIOSIS [None]
  - FALL [None]
  - PELVIC FRACTURE [None]
  - POSTMENOPAUSAL HAEMORRHAGE [None]
  - PROCEDURAL COMPLICATION [None]
  - PUBIC RAMI FRACTURE [None]
  - UTERINE PERFORATION [None]
